FAERS Safety Report 12406165 (Version 1)
Quarter: 2016Q2

REPORT INFORMATION
  Report Type: Spontaneous
  Country: LK (occurrence: LK)
  Receive Date: 20160526
  Receipt Date: 20160526
  Transmission Date: 20160815
  Serious: Yes (Death, Hospitalization)
  Sender: FDA-Public Use
  Company Number: LK-ROCHE-1763771

PATIENT
  Age: 11 Year
  Sex: Female
  Weight: 25 kg

DRUGS (1)
  1. ACTEMRA [Suspect]
     Active Substance: TOCILIZUMAB
     Indication: JUVENILE IDIOPATHIC ARTHRITIS
     Route: 065

REACTIONS (4)
  - Death [Fatal]
  - Pyrexia [Unknown]
  - Mass [Unknown]
  - Chest pain [Unknown]
